FAERS Safety Report 5447936-0 (Version None)
Quarter: 2007Q3

REPORT INFORMATION
  Report Type: 
  Country: None (occurrence: None)
  Receive Date: 20070910
  Receipt Date: 20070829
  Transmission Date: 20080115
  Serious: Yes (Other)
  Sender: FDA-Public Use
  Company Number: GB-PFIZER INC-2007072836

PATIENT
  Age: 62 Year
  Sex: Male

DRUGS (2)
  1. PHENYTOIN [Suspect]
  2. CARBAMAZEPINE [Suspect]

REACTIONS (2)
  - BACTERAEMIA [None]
  - DRUG RASH WITH EOSINOPHILIA AND SYSTEMIC SYMPTOMS [None]
